FAERS Safety Report 10543132 (Version 1)
Quarter: 2014Q4

REPORT INFORMATION
  Report Type: Spontaneous
  Country: US (occurrence: None)
  Receive Date: 20141024
  Receipt Date: 20141024
  Transmission Date: 20150529
  Serious: Yes (Hospitalization)
  Sender: FDA-Public Use
  Company Number: None

PATIENT
  Age: 79 Year
  Sex: Male

DRUGS (1)
  1. XTANDI [Suspect]
     Active Substance: ENZALUTAMIDE
     Indication: PROSTATE CANCER
     Route: 048
     Dates: start: 201308

REACTIONS (4)
  - Diffuse large B-cell lymphoma [None]
  - Pain [None]
  - Drug dose omission [None]
  - Renal disorder [None]

NARRATIVE: CASE EVENT DATE: 20141003
